FAERS Safety Report 5457720-X (Version None)
Quarter: 2007Q3

REPORT INFORMATION
  Report Type: 
  Country: None (occurrence: None)
  Receive Date: 20070917
  Receipt Date: 20070906
  Transmission Date: 20080115
  Serious: Yes (Other)
  Sender: FDA-Public Use
  Company Number: 017054

PATIENT
  Age: 25 Year
  Sex: Female
  Weight: 52.2 kg

DRUGS (1)
  1. CLARAVIS [Suspect]
     Dosage: 20 MG, BID, ORAL
     Route: 048
     Dates: start: 20070525, end: 20070808

REACTIONS (6)
  - ABORTION INDUCED [None]
  - DIZZINESS [None]
  - DRUG EXPOSURE DURING PREGNANCY [None]
  - PAIN IN EXTREMITY [None]
  - PHARMACEUTICAL PRODUCT COMPLAINT [None]
  - PREGNANCY WITH CONTRACEPTIVE PATCH [None]
